FAERS Safety Report 17364549 (Version 1)
Quarter: 2020Q1

REPORT INFORMATION
  Report Type: Spontaneous
  Country: US (occurrence: US)
  Receive Date: 20200204
  Receipt Date: 20200204
  Transmission Date: 20200409
  Serious: Yes (Death, Life-Threatening, Hospitalization, Other)
  Sender: FDA-Public Use
  Company Number: US-UNITED THERAPEUTICS-UNT-2020-000582

PATIENT
  Age: 67 Year
  Sex: Female
  Weight: 68.27 kg

DRUGS (3)
  1. REMODULIN [Suspect]
     Active Substance: TREPROSTINIL
     Indication: PULMONARY HYPERTENSION
     Dosage: UNK UNK, CONTINUING
     Route: 058
  2. LETAIRIS [Concomitant]
     Active Substance: AMBRISENTAN
     Indication: PRODUCT USED FOR UNKNOWN INDICATION
     Dosage: UNK
     Route: 065
  3. REMODULIN [Suspect]
     Active Substance: TREPROSTINIL
     Indication: PULMONARY ARTERIAL HYPERTENSION
     Dosage: 0.046 ?G/KG, CONTINUING
     Route: 058
     Dates: start: 20190313

REACTIONS (15)
  - Cardiogenic shock [Unknown]
  - Hypomagnesaemia [Unknown]
  - Hypophosphataemia [Unknown]
  - Anaemia [Unknown]
  - Fatigue [Unknown]
  - Melaena [Unknown]
  - Asthenia [Unknown]
  - Acute kidney injury [Unknown]
  - Withdrawal of life support [Fatal]
  - Cardiac arrest [Unknown]
  - Acute respiratory failure [Unknown]
  - Gastric disorder [Unknown]
  - Hepatic cirrhosis [Unknown]
  - Thrombocytopenia [Unknown]
  - Hypokalaemia [Unknown]

NARRATIVE: CASE EVENT DATE: 20191230
